FAERS Safety Report 6402173-8 (Version None)
Quarter: 2009Q4

REPORT INFORMATION
  Report Type: 
  Country: None (occurrence: None)
  Receive Date: 20091014
  Receipt Date: 20091014
  Transmission Date: 20100525
  Serious: Yes (Life-Threatening, Other)
  Sender: FDA-Public Use
  Company Number: None

PATIENT
  Age: 61 Year
  Sex: Female
  Weight: 64.4108 kg

DRUGS (12)
  1. ACTONEL [Suspect]
     Indication: OSTEOPENIA
     Dosage: 150 MG MONTHLY ORAL 047
     Route: 048
     Dates: start: 20090601
  2. ACTONEL [Suspect]
     Indication: OSTEOPENIA
     Dosage: 150 MG MONTHLY ORAL 047
     Route: 048
     Dates: start: 20090701
  3. ACTONEL [Suspect]
     Indication: OSTEOPENIA
     Dosage: 150 MG MONTHLY ORAL 047
     Route: 048
     Dates: start: 20090801
  4. LEVOTHYROXINE SODIUM [Concomitant]
  5. LEXAPRO [Concomitant]
  6. CLIMARA [Concomitant]
  7. PROMETRIUM [Concomitant]
  8. CALCIUM/D [Concomitant]
  9. FOLIC ACID [Concomitant]
  10. GLUCOSAMINE [Concomitant]
  11. MULTI-VITAMIN [Concomitant]
  12. ASPIRIN [Concomitant]

REACTIONS (5)
  - CHOKING [None]
  - COUGH [None]
  - DYSPHAGIA [None]
  - INFLUENZA LIKE ILLNESS [None]
  - OESOPHAGITIS [None]
